FAERS Safety Report 25152497 (Version 1)
Quarter: 2025Q2

REPORT INFORMATION
  Report Type: Spontaneous
  Country: BR (occurrence: BR)
  Receive Date: 20250402
  Receipt Date: 20250402
  Transmission Date: 20250716
  Serious: Yes (Other)
  Sender: BAYER
  Company Number: BR-BAYER-2025A023648

PATIENT
  Age: 40 Year
  Sex: Female

DRUGS (1)
  1. MIRENA [Suspect]
     Active Substance: LEVONORGESTREL
     Indication: Product used for unknown indication
     Dosage: 20?G/DAY
     Route: 015
     Dates: start: 20220629

REACTIONS (5)
  - Device breakage [None]
  - Abdominal pain lower [None]
  - Genital haemorrhage [None]
  - Device difficult to use [None]
  - Abdominal pain [None]
